FAERS Safety Report 7722049-3 (Version None)
Quarter: 2011Q3

REPORT INFORMATION
  Report Type: 
  Country: None (occurrence: None)
  Receive Date: 20110831
  Receipt Date: 20110828
  Transmission Date: 20111222
  Serious: Yes (Death, Hospitalization, Other)
  Sender: FDA-Public Use
  Company Number: US-AMGEN-USASP2011037135

PATIENT
  Age: 81 Year
  Sex: Male

DRUGS (3)
  1. RITUXAN [Concomitant]
  2. CORTICOSTEROIDS [Concomitant]
  3. NPLATE [Suspect]
     Indication: IDIOPATHIC THROMBOCYTOPENIC PURPURA
     Dosage: 250 MUG, UNK
     Dates: start: 20101220, end: 20110126

REACTIONS (8)
  - SEPSIS [None]
  - KNEE ARTHROPLASTY [None]
  - CARDIAC FAILURE CONGESTIVE [None]
  - PNEUMONIA [None]
  - CARDIAC ARREST [None]
  - RESPIRATORY FAILURE [None]
  - CHOLECYSTITIS ACUTE [None]
  - BILE DUCT STONE [None]
